FAERS Safety Report 9705653 (Version 2)
Quarter: 2013Q4

REPORT INFORMATION
  Report Type: Spontaneous
  Country: US (occurrence: US)
  Receive Date: 20131122
  Receipt Date: 20131122
  Transmission Date: 20140711
  Serious: No
  Sender: FDA-Public Use
  Company Number: US-GILEAD-2008-0017075

PATIENT
  Age: 79 Year
  Sex: Female

DRUGS (2)
  1. LETAIRIS [Suspect]
     Indication: PULMONARY HYPERTENSION
     Route: 048
     Dates: start: 20080409, end: 20080611
  2. REVATIO [Concomitant]
     Dates: end: 20080505

REACTIONS (4)
  - Oral disorder [Recovered/Resolved]
  - Pulmonary congestion [Recovered/Resolved]
  - Wheezing [Recovered/Resolved]
  - Nasal congestion [Recovered/Resolved]
